FAERS Safety Report 7909780-1 (Version None)
Quarter: 2011Q4

REPORT INFORMATION
  Report Type: 
  Country: None (occurrence: None)
  Receive Date: 20111111
  Receipt Date: 20111013
  Transmission Date: 20120403
  Serious: No
  Sender: FDA-Public Use
  Company Number: US-BAYER-2011-100310

PATIENT
  Age: 68 Year
  Sex: Female

DRUGS (1)
  1. ALEVE (CAPLET) [Suspect]
     Indication: ARTHRALGIA
     Route: 048

REACTIONS (4)
  - EYE PRURITUS [None]
  - HYPERSENSITIVITY [None]
  - PRURITUS [None]
  - EYE SWELLING [None]
